FAERS Safety Report 22079862 (Version 1)
Quarter: 2023Q1

REPORT INFORMATION
  Report Type: Spontaneous
  Country: US (occurrence: None)
  Receive Date: 20230309
  Receipt Date: 20230309
  Transmission Date: 20230417
  Serious: Yes (Other)
  Sender: FDA-Public Use
  Company Number: None

PATIENT
  Age: 54 Year
  Sex: Female
  Weight: 115.65 kg

DRUGS (1)
  1. AJOVY [Suspect]
     Active Substance: FREMANEZUMAB-VFRM
     Indication: Migraine
     Dates: start: 20221105

REACTIONS (6)
  - Swelling face [None]
  - Peripheral swelling [None]
  - Peripheral swelling [None]
  - Wheezing [None]
  - Dyspnoea exertional [None]
  - Peripheral swelling [None]

NARRATIVE: CASE EVENT DATE: 20221105
